FAERS Safety Report 20022433 (Version 1)
Quarter: 2021Q4

REPORT INFORMATION
  Report Type: Spontaneous
  Country: US (occurrence: US)
  Receive Date: 20211102
  Receipt Date: 20211102
  Transmission Date: 20220303
  Serious: Yes (Other)
  Sender: FDA-Public Use
  Company Number: US-009507513-2110USA008594

PATIENT
  Age: 75 Year
  Sex: Male

DRUGS (1)
  1. KEYTRUDA [Suspect]
     Active Substance: PEMBROLIZUMAB
     Indication: Malignant melanoma stage IV

REACTIONS (5)
  - Hepatitis [Recovering/Resolving]
  - Drug resistance [Unknown]
  - Drug ineffective [Unknown]
  - Toxicity to various agents [Unknown]
  - Dermatitis psoriasiform [Not Recovered/Not Resolved]
